FAERS Safety Report 6155140-6 (Version None)
Quarter: 2009Q2

REPORT INFORMATION
  Report Type: 
  Country: None (occurrence: None)
  Receive Date: 20090415
  Receipt Date: 20070315
  Transmission Date: 20091009
  Serious: Yes (Hospitalization, Disabling)
  Sender: FDA-Public Use
  Company Number: US-ASTRAZENECA-2006UW21055

PATIENT
  Sex: Female
  Weight: 71.7 kg

DRUGS (15)
  1. SEROQUEL [Suspect]
     Indication: PSYCHOTIC DISORDER
     Dosage: 100-400MG/DAY
     Route: 048
     Dates: start: 20050615
  2. RISPERIDONE [Concomitant]
  3. FERROUS SULFATE TAB [Concomitant]
  4. PRENATAL VITAMINES [Concomitant]
  5. DEPO-PROVERA [Concomitant]
  6. ACETAMINOPHEN [Concomitant]
  7. LORAZEPAM [Concomitant]
  8. PENICILLIN [Concomitant]
  9. PREDNISONE [Concomitant]
  10. NAPROXEN [Concomitant]
  11. METRONIDAZOLE [Concomitant]
  12. TERCONAZOLE [Concomitant]
  13. FLUCONAZOLE [Concomitant]
  14. DOXYCYCLIN [Concomitant]
  15. BENZTROPINE MESYLATE [Concomitant]

REACTIONS (19)
  - ABDOMINAL PAIN LOWER [None]
  - ANAEMIA [None]
  - ASTHMA [None]
  - DRUG EXPOSURE DURING PREGNANCY [None]
  - DYSURIA [None]
  - EYE IRRITATION [None]
  - HEADACHE [None]
  - HYPOAESTHESIA [None]
  - ILL-DEFINED DISORDER [None]
  - MUSCLE SPASMS [None]
  - NASAL CONGESTION [None]
  - RHINITIS ALLERGIC [None]
  - SCHIZOPHRENIA, PARANOID TYPE [None]
  - SCHIZOPHRENIFORM DISORDER [None]
  - SPLENOMEGALY [None]
  - UPPER RESPIRATORY TRACT INFECTION [None]
  - VAGINAL DISCHARGE [None]
  - VAGINAL INFECTION [None]
  - VULVOVAGINAL DISCOMFORT [None]
